FAERS Safety Report 6695815-3 (Version None)
Quarter: 2010Q2

REPORT INFORMATION
  Report Type: 
  Country: None (occurrence: None)
  Receive Date: 20100423
  Receipt Date: 20100423
  Transmission Date: 20101027
  Serious: No
  Sender: FDA-Public Use
  Company Number: None

PATIENT
  Age: 39 Year
  Sex: Male
  Weight: 95.2554 kg

DRUGS (1)
  1. SIMPONI [Suspect]
     Indication: RHEUMATOID ARTHRITIS
     Dosage: INJECTION 1X MONTH IM
     Route: 030
     Dates: start: 20091208, end: 20100308

REACTIONS (5)
  - FACIAL PAIN [None]
  - HEADACHE [None]
  - HYPOAESTHESIA FACIAL [None]
  - TINNITUS [None]
  - VISUAL ACUITY REDUCED [None]
